FAERS Safety Report 8305222 (Version 3)
Quarter: 2014Q4

REPORT INFORMATION
  Report Type: Spontaneous
  Country: US (occurrence: US)
  Receive Date: 20111221
  Receipt Date: 20141209
  Transmission Date: 20150529
  Serious: No
  Sender: FDA-Public Use
  Company Number: US-GLAXOSMITHKLINE-A0931152A

PATIENT
  Sex: Female

DRUGS (12)
  1. ALTACE [Concomitant]
     Active Substance: RAMIPRIL
  2. PRILOSEC [Concomitant]
     Active Substance: OMEPRAZOLE MAGNESIUM
  3. WELLBUTRIN [Suspect]
     Active Substance: BUPROPION HYDROCHLORIDE
     Indication: DEPRESSION
     Route: 048
  4. LOVAZA [Suspect]
     Active Substance: OMEGA-3-ACID ETHYL ESTERS
     Indication: BLOOD TRIGLYCERIDES INCREASED
     Dosage: 11MAR2014: 1 GM CAPSULE, UNKNOWN DOSING.
     Route: 048
     Dates: start: 20110610
  5. TRICOR [Concomitant]
     Active Substance: FENOFIBRATE
  6. WELLBUTRIN [Concomitant]
     Active Substance: BUPROPION HYDROCHLORIDE
  7. GLIMEPIRIDE. [Concomitant]
     Active Substance: GLIMEPIRIDE
  8. PLAVIX [Concomitant]
     Active Substance: CLOPIDOGREL BISULFATE
  9. SINGULAIR [Concomitant]
     Active Substance: MONTELUKAST SODIUM
  10. LOVAZA [Suspect]
     Active Substance: OMEGA-3-ACID ETHYL ESTERS
     Dosage: UNK
  11. PRAVACHOL [Concomitant]
     Active Substance: PRAVASTATIN SODIUM
  12. ZYRTEC [Concomitant]
     Active Substance: CETIRIZINE HYDROCHLORIDE

REACTIONS (3)
  - Hyperhidrosis [Unknown]
  - Eructation [Unknown]
  - Therapeutic response unexpected [Unknown]
